FAERS Safety Report 14208203 (Version 2)
Quarter: 2017Q4

REPORT INFORMATION
  Report Type: Other
  Country: JP (occurrence: JP)
  Receive Date: 20171121
  Receipt Date: 20171128
  Transmission Date: 20180321
  Serious: Yes (Other)
  Sender: FDA-Public Use
  Company Number: JP-EMD SERONO-8203520

PATIENT
  Age: 16 Year
  Sex: Female

DRUGS (3)
  1. ESTROGEN [Concomitant]
     Active Substance: ESTROGENS
     Indication: MENSTRUATION IRREGULAR
     Route: 062
  2. SAIZEN [Suspect]
     Active Substance: SOMATROPIN
     Dosage: RESTARTED AT THE AGE OF 16
  3. SAIZEN [Suspect]
     Active Substance: SOMATROPIN
     Indication: GROWTH HORMONE DEFICIENCY
     Dosage: UNSPECIFIED DOSE

REACTIONS (2)
  - Adrenal insufficiency [Unknown]
  - Liver disorder [Recovering/Resolving]
